FAERS Safety Report 20146780 (Version 2)
Quarter: 2021Q4

REPORT INFORMATION
  Report Type: Spontaneous
  Country: VN (occurrence: VN)
  Receive Date: 20211203
  Receipt Date: 20211213
  Transmission Date: 20220303
  Serious: Yes (Hospitalization, Other)
  Sender: FDA-Public Use
  Company Number: VN-GE HEALTHCARE-2021CSU006073

PATIENT

DRUGS (2)
  1. OMNIPAQUE [Suspect]
     Active Substance: IOHEXOL
     Indication: Computerised tomogram abdomen
     Dosage: 50 ML, SINGLE
     Route: 065
     Dates: start: 20211123, end: 20211123
  2. OMNIPAQUE [Suspect]
     Active Substance: IOHEXOL
     Indication: Diverticulitis

REACTIONS (8)
  - Stridor [Recovering/Resolving]
  - Vein discolouration [Recovering/Resolving]
  - Fatigue [Recovering/Resolving]
  - Hypoventilation [Recovering/Resolving]
  - Dyspnoea [Recovering/Resolving]
  - Rales [Recovering/Resolving]
  - Tachycardia [Recovering/Resolving]
  - Nasal pruritus [Recovering/Resolving]

NARRATIVE: CASE EVENT DATE: 20211123
